FAERS Safety Report 20939932 (Version 1)
Quarter: 2022Q2

REPORT INFORMATION
  Report Type: Report from Study
  Country: DE (occurrence: DE)
  Receive Date: 20220609
  Receipt Date: 20220609
  Transmission Date: 20220721
  Serious: Yes (Hospitalization)
  Sender: FDA-Public Use
  Company Number: DE-JNJFOC-20220445312

PATIENT
  Age: 6 Decade
  Sex: Male

DRUGS (11)
  1. SIMPONI [Suspect]
     Active Substance: GOLIMUMAB
     Indication: Psoriatic arthropathy
     Route: 058
     Dates: start: 20201209, end: 20210510
  2. CELECOXIB [Suspect]
     Active Substance: CELECOXIB
     Indication: Psoriatic arthropathy
     Route: 065
     Dates: start: 20201207
  3. CELECOXIB [Suspect]
     Active Substance: CELECOXIB
     Route: 065
     Dates: start: 20151130
  4. CELECOXIB [Suspect]
     Active Substance: CELECOXIB
     Route: 065
     Dates: start: 20180601
  5. CELECOXIB [Suspect]
     Active Substance: CELECOXIB
     Route: 065
     Dates: start: 20190428
  6. CELECOXIB [Suspect]
     Active Substance: CELECOXIB
     Route: 065
     Dates: start: 20200618
  7. CLOPREDNOL [Concomitant]
     Active Substance: CLOPREDNOL
     Dates: start: 20200618
  8. PREDNISONE [Concomitant]
     Active Substance: PREDNISONE
     Dates: start: 20210621
  9. COSENTYX [Concomitant]
     Active Substance: SECUKINUMAB
     Indication: Product used for unknown indication
     Route: 065
     Dates: start: 20181212
  10. COSENTYX [Concomitant]
     Active Substance: SECUKINUMAB
     Route: 065
     Dates: start: 20181212, end: 20190321
  11. ADALIMUMAB [Concomitant]
     Active Substance: ADALIMUMAB
     Indication: Product used for unknown indication
     Route: 065
     Dates: start: 20190428

REACTIONS (2)
  - Knee arthroplasty [Unknown]
  - COVID-19 [Unknown]

NARRATIVE: CASE EVENT DATE: 20210115
